FAERS Safety Report 9490592 (Version 1)
Quarter: 2013Q3

REPORT INFORMATION
  Report Type: Report from Study
  Country: PE (occurrence: PE)
  Receive Date: 20130830
  Receipt Date: 20130830
  Transmission Date: 20140515
  Serious: Yes (Hospitalization)
  Sender: FDA-Public Use
  Company Number: PE-ROCHE-1267333

PATIENT
  Age: 7 Year
  Sex: 0

DRUGS (1)
  1. PULMOZYME [Suspect]
     Indication: CYSTIC FIBROSIS
     Route: 048
     Dates: start: 20130113

REACTIONS (2)
  - Pseudomonas infection [Recovering/Resolving]
  - Cough [Recovering/Resolving]
